FAERS Safety Report 18131589 (Version 2)
Quarter: 2020Q3

REPORT INFORMATION
  Report Type: Report from Study
  Country: US (occurrence: US)
  Receive Date: 20200810
  Receipt Date: 20200817
  Transmission Date: 20201103
  Serious: Yes (Death, Life-Threatening, Disabling)
  Sender: FDA-Public Use
  Company Number: US-ROCHE-2654392

PATIENT
  Age: 43 Year
  Sex: Male
  Weight: 78.5 kg

DRUGS (18)
  1. REMDESIVIR. [Suspect]
     Active Substance: REMDESIVIR
     Indication: COVID-19 PNEUMONIA
     Dosage: MOST RECENT DOSE OF REMDESIVIR PRIOR TO ADVERSE EVENT ONSET 29/JUL/2020 AT 15:14 250 ML
     Route: 042
     Dates: start: 20200727
  2. AZITHROMYCIN ANHYDROUS. [Concomitant]
     Active Substance: AZITHROMYCIN ANHYDROUS
     Indication: COVID-19
     Dates: start: 20200725, end: 20200727
  3. ETOMIDATE. [Concomitant]
     Active Substance: ETOMIDATE
     Indication: GENERAL ANAESTHESIA
     Dates: start: 20200726, end: 20200726
  4. INSULIN LISPRO [Concomitant]
     Active Substance: INSULIN LISPRO
     Indication: TYPE 2 DIABETES MELLITUS
     Dosage: 16 U
     Dates: start: 20200720, end: 20200729
  5. ACETAMINOPHEN. [Concomitant]
     Active Substance: ACETAMINOPHEN
     Indication: PYREXIA
     Dates: start: 20200720, end: 20200729
  6. TOCILIZUMAB. [Suspect]
     Active Substance: TOCILIZUMAB
     Indication: COVID-19 PNEUMONIA
     Dosage: MOST RECENT DOSE OF TOCILIZUMAB PRIOR TO ADVERSE EVENT ONSET 27/JUL/2020 AT 20:31
     Route: 042
     Dates: start: 20200727
  7. DESMOPRESSIN ACETATE. [Concomitant]
     Active Substance: DESMOPRESSIN ACETATE
     Indication: CEREBROVASCULAR ACCIDENT
     Dosage: DOSE 20, UNIT OTHER
     Dates: start: 20200726, end: 20200726
  8. HEPARIN [Concomitant]
     Active Substance: HEPARIN SODIUM
     Dosage: DOSE 1000, UNIT OTHER
     Dates: start: 20200720, end: 20200729
  9. INSULIN GLARGINE [Concomitant]
     Active Substance: INSULIN GLARGINE
     Indication: DIABETES MELLITUS
     Dosage: 10 U
     Dates: start: 20200720, end: 20200729
  10. DOXYCYCLINE. [Concomitant]
     Active Substance: DOXYCYCLINE
     Indication: COVID-19
     Dates: start: 20200727, end: 20200729
  11. FAMOTIDINE. [Concomitant]
     Active Substance: FAMOTIDINE
     Indication: NAUSEA
     Dates: start: 20200726, end: 20200729
  12. FENTANYL CITRATE. [Concomitant]
     Active Substance: FENTANYL CITRATE
     Indication: PAIN
     Dosage: DOSE 100, UNIT OTHER
     Dates: start: 20200726, end: 20200726
  13. LABETALOL [Concomitant]
     Active Substance: LABETALOL\LABETALOL HYDROCHLORIDE
     Indication: HYPOTENSION
     Dates: start: 20200722, end: 20200722
  14. ATROPINE SULFATE. [Concomitant]
     Active Substance: ATROPINE SULFATE
     Indication: BRADYCARDIA
     Dates: start: 20200727, end: 20200727
  15. ATORVASTATIN [Concomitant]
     Active Substance: ATORVASTATIN
     Indication: CEREBROVASCULAR ACCIDENT
     Dates: start: 20200726, end: 20200729
  16. DEXAMETHASONE. [Concomitant]
     Active Substance: DEXAMETHASONE
     Dates: start: 20200720, end: 20200729
  17. LORAZEPAM. [Concomitant]
     Active Substance: LORAZEPAM
     Indication: ANXIETY
     Dates: start: 20200728, end: 20200728
  18. MANNITOL. [Concomitant]
     Active Substance: MANNITOL
     Indication: CEREBROVASCULAR ACCIDENT
     Dosage: DOSE 50, UNIT OTHER
     Dates: start: 20200720, end: 20200720

REACTIONS (3)
  - Cardiac arrest [Fatal]
  - Quadriplegia [Not Recovered/Not Resolved]
  - Shock haemorrhagic [Not Recovered/Not Resolved]

NARRATIVE: CASE EVENT DATE: 20200728
